FAERS Safety Report 18922733 (Version 1)
Quarter: 2021Q1

REPORT INFORMATION
  Report Type: Spontaneous
  Country: FR (occurrence: FR)
  Receive Date: 20210222
  Receipt Date: 20210222
  Transmission Date: 20210420
  Serious: Yes (Hospitalization)
  Sender: FDA-Public Use
  Company Number: FR-MYLANLABS-2021M1010767

PATIENT
  Age: 85 Year
  Sex: Male

DRUGS (4)
  1. VALSARTAN. [Suspect]
     Active Substance: VALSARTAN
     Indication: CARDIAC FAILURE
     Dosage: 40 MILLIGRAM, QD
     Route: 065
  2. HYDROCHLOROTHIAZIDE. [Concomitant]
     Active Substance: HYDROCHLOROTHIAZIDE
     Indication: DIURETIC THERAPY
     Dosage: 50 MILLIGRAM, QD
     Route: 065
  3. CANRENOIC ACID [Concomitant]
     Active Substance: CANRENOIC ACID
     Indication: CARDIAC FAILURE
     Dosage: 100 MILLIGRAM, BID
     Route: 042
  4. BUMETANIDE. [Concomitant]
     Active Substance: BUMETANIDE
     Indication: DIURETIC THERAPY
     Dosage: 25 MILLIGRAM, QD

REACTIONS (3)
  - Hypotension [Recovered/Resolved]
  - Renal impairment [Recovered/Resolved]
  - Oliguria [Recovered/Resolved]
